FAERS Safety Report 6511676-7 (Version None)
Quarter: 2009Q4

REPORT INFORMATION
  Report Type: 
  Country: None (occurrence: None)
  Receive Date: 20091222
  Receipt Date: 20090430
  Transmission Date: 20100525
  Serious: No
  Sender: FDA-Public Use
  Company Number: US-ASTRAZENECA-2009UW10933

PATIENT
  Sex: Female
  Weight: 77.1 kg

DRUGS (4)
  1. CRESTOR [Suspect]
     Route: 048
     Dates: start: 20090428, end: 20090430
  2. KLOR-CON [Suspect]
  3. TENORMIN [Concomitant]
  4. DIOVAN HCT [Concomitant]

REACTIONS (4)
  - ABDOMINAL DISCOMFORT [None]
  - FEELING ABNORMAL [None]
  - MUSCLE SPASMS [None]
  - PAIN IN JAW [None]
